FAERS Safety Report 7022544-9 (Version None)
Quarter: 2010Q3

REPORT INFORMATION
  Report Type: 
  Country: None (occurrence: None)
  Receive Date: 20100930
  Receipt Date: 20100927
  Transmission Date: 20110219
  Serious: Yes (Hospitalization)
  Sender: FDA-Public Use
  Company Number: IT-PFIZER INC-2010122766

PATIENT
  Age: 37 Year
  Sex: Male

DRUGS (3)
  1. FELDENE [Suspect]
     Indication: NECK PAIN
     Dosage: 20 MG/ML, TOTAL
     Route: 030
     Dates: start: 20100924, end: 20100924
  2. MUSCORIL [Concomitant]
     Indication: NECK PAIN
     Dosage: 4MG/ 2ML, UNK
     Route: 048
     Dates: start: 20100922
  3. VOLTAREN [Concomitant]
     Indication: NECK PAIN
     Dosage: 75MG/3ML
     Route: 030
     Dates: start: 20100922, end: 20100923

REACTIONS (3)
  - PENILE OEDEMA [None]
  - PRURITUS [None]
  - URTICARIA [None]
